FAERS Safety Report 8799659 (Version 1)
Quarter: 2012Q4

REPORT INFORMATION
  Report Type: Report from Study
  Country: JP (occurrence: JP)
  Receive Date: 20120919
  Receipt Date: 20120919
  Transmission Date: 20130627
  Serious: Yes (Hospitalization)
  Sender: FDA-Public Use
  Company Number: JP-MERCK-1209JPN005353

PATIENT

DRUGS (14)
  1. PEGINTRON [Suspect]
     Indication: HEPATITIS C
     Dosage: 1.5 Microgram per kilogram, qw
     Route: 058
     Dates: start: 20120306, end: 20120529
  2. REBETOL [Suspect]
     Indication: HEPATITIS C
     Dosage: 600 mg, qd
     Route: 048
     Dates: start: 20120306, end: 20120326
  3. REBETOL [Suspect]
     Dosage: 400 mg, qd
     Route: 048
     Dates: start: 20120327, end: 20120409
  4. REBETOL [Suspect]
     Dosage: 200 mg, qd
     Route: 048
     Dates: start: 20120410, end: 20120605
  5. TELAVIC [Suspect]
     Indication: HEPATITIS C
     Dosage: 2250 mg, qd
     Route: 048
     Dates: start: 20120306, end: 20120529
  6. TELAVIC [Suspect]
     Dosage: 2250 mg, qd
     Route: 048
     Dates: start: 20120306, end: 20120529
  7. URSO [Concomitant]
     Indication: HEPATITIS C
     Dosage: 600 mg, qd
     Route: 048
     Dates: end: 20120313
  8. GLUCOBAY [Concomitant]
  9. PARIET [Concomitant]
     Route: 048
  10. MUCOSTA [Concomitant]
     Route: 048
  11. LOXONIN [Concomitant]
     Dosage: UNK, prn
     Route: 048
  12. DEPAS [Concomitant]
     Dosage: UNK, prn
     Route: 048
  13. LENDORMIN [Concomitant]
     Dosage: UNK, prn
     Route: 048
  14. ALLEGRA [Concomitant]
     Route: 048

REACTIONS (2)
  - Psychiatric symptom [Recovering/Resolving]
  - Depression [Recovering/Resolving]
